FAERS Safety Report 14618570 (Version 1)
Quarter: 2018Q1

REPORT INFORMATION
  Report Type: Spontaneous
  Country: CO (occurrence: CO)
  Receive Date: 20180309
  Receipt Date: 20180309
  Transmission Date: 20180509
  Serious: Yes (Other)
  Sender: FDA-Public Use
  Company Number: CO-ABBVIE-18S-036-2264700-00

PATIENT
  Sex: Male

DRUGS (1)
  1. SURVANTA [Suspect]
     Active Substance: BERACTANT
     Indication: NEONATAL RESPIRATORY DISTRESS SYNDROME
     Route: 039

REACTIONS (3)
  - Suspected counterfeit product [Unknown]
  - Drug ineffective [Not Recovered/Not Resolved]
  - Neonatal respiratory distress syndrome [Recovering/Resolving]

NARRATIVE: CASE EVENT DATE: 20180219
